FAERS Safety Report 24463046 (Version 1)
Quarter: 2024Q4

REPORT INFORMATION
  Report Type: Spontaneous
  Country: CN (occurrence: CN)
  Receive Date: 20241018
  Receipt Date: 20241018
  Transmission Date: 20250115
  Serious: Yes (Hospitalization)
  Sender: ELI LILLY AND COMPANY
  Company Number: CN-ELI_LILLY_AND_COMPANY-CN202410005148

PATIENT
  Age: 57 Year
  Sex: Female
  Weight: 39 kg

DRUGS (2)
  1. GEMCITABINE HYDROCHLORIDE [Suspect]
     Active Substance: GEMCITABINE HYDROCHLORIDE
     Indication: Nasopharyngeal cancer
     Dosage: 100 MG, SINGLE
     Route: 041
     Dates: start: 20240809
  2. TISLELIZUMAB [Suspect]
     Active Substance: TISLELIZUMAB
     Indication: Nasopharyngeal cancer
     Dosage: 200 MG, SINGLE
     Route: 041
     Dates: start: 20240807

REACTIONS (6)
  - Adrenal disorder [Recovering/Resolving]
  - Off label use [Unknown]
  - Thyroid hormones increased [Recovering/Resolving]
  - Tri-iodothyronine increased [Recovering/Resolving]
  - Thyroxine free increased [Recovering/Resolving]
  - Blood thyroid stimulating hormone decreased [Recovering/Resolving]

NARRATIVE: CASE EVENT DATE: 20240828
